FAERS Safety Report 15670870 (Version 1)
Quarter: 2018Q4

REPORT INFORMATION
  Report Type: Spontaneous
  Country: GB (occurrence: GB)
  Receive Date: 20181129
  Receipt Date: 20181129
  Transmission Date: 20190205
  Serious: No
  Sender: FDA-Public Use
  Company Number: GB-NODEN PHARMA DAC-NOD-2017-000114

PATIENT
  Age: 70 Year
  Sex: Female

DRUGS (4)
  1. RASILEZ [Suspect]
     Active Substance: ALISKIREN
     Dosage: 0.5 DF (1/2 OF A 150 MG TABLET), DAILY
     Route: 048
     Dates: start: 201710
  2. LUSTRAL [Concomitant]
     Active Substance: SERTRALINE HYDROCHLORIDE
     Indication: ANXIETY
     Dosage: 1/4 OF A 50 MG TABLET, DAILY
     Route: 065
     Dates: start: 201710
  3. RASILEZ [Suspect]
     Active Substance: ALISKIREN
     Indication: HYPERTENSION
     Dosage: 1/3 OF A 150 MG TABLET, OVER 3 DAYS
     Route: 048
     Dates: start: 201710, end: 201710
  4. RASILEZ [Suspect]
     Active Substance: ALISKIREN
     Dosage: 0.5 DF (1/2 OF A 150 MG TABLET), TAKEN ON ALTERNATE DAYS
     Route: 048
     Dates: start: 201710, end: 201710

REACTIONS (6)
  - Wrong technique in product usage process [Unknown]
  - Product use issue [Unknown]
  - Eye pruritus [Unknown]
  - Feeling abnormal [Unknown]
  - Ocular hyperaemia [Unknown]
  - Dry eye [Unknown]

NARRATIVE: CASE EVENT DATE: 201710
